FAERS Safety Report 9278597 (Version 2)
Quarter: 2013Q2

REPORT INFORMATION
  Report Type: Spontaneous
  Country: US (occurrence: US)
  Receive Date: 20130508
  Receipt Date: 20130513
  Transmission Date: 20140414
  Serious: No
  Sender: FDA-Public Use
  Company Number: US-PFIZER INC-2013141779

PATIENT
  Age: 68 Year
  Sex: Male
  Weight: 113.38 kg

DRUGS (4)
  1. LYRICA [Suspect]
     Indication: NEURALGIA
     Dosage: UNK
     Dates: start: 2010, end: 201305
  2. LYRICA [Suspect]
     Indication: BACK PAIN
  3. PERCOCET [Concomitant]
     Dosage: UNK
  4. DURAGESIC [Concomitant]
     Dosage: UNK

REACTIONS (6)
  - Drug withdrawal syndrome [Recovered/Resolved]
  - Muscle spasms [Recovered/Resolved]
  - Restless legs syndrome [Recovered/Resolved]
  - Dyskinesia [Recovered/Resolved]
  - Tremor [Recovered/Resolved]
  - Aggression [Recovered/Resolved]
